FAERS Safety Report 6982631-8 (Version None)
Quarter: 2010Q3

REPORT INFORMATION
  Report Type: 
  Country: None (occurrence: None)
  Receive Date: 20100914
  Receipt Date: 20100212
  Transmission Date: 20110219
  Serious: No
  Sender: FDA-Public Use
  Company Number: US-PFIZER INC-2010022118

PATIENT
  Sex: Male
  Weight: 97.1 kg

DRUGS (13)
  1. LYRICA [Suspect]
     Indication: HERPES ZOSTER
     Dosage: 200 MG, 3X/DAY
     Route: 048
     Dates: start: 20090701
  2. LIDOCAINE HYDROCHLORIDE [Suspect]
     Dosage: UNK
  3. DECADRON [Concomitant]
     Dosage: 40 MG, ONCE A WEEK
  4. NORVASC [Concomitant]
     Dosage: 5 MG, 1X/DAY
  5. HYDRALAZINE [Concomitant]
     Dosage: 10 MG, 4X/DAY
  6. TAMSULOSIN [Concomitant]
     Dosage: UNK
  7. SIMVASTATIN [Concomitant]
     Dosage: 80 MG, 1X/DAY
  8. LEXAPRO [Concomitant]
     Dosage: 10 MG, 1X/DAY
  9. NEXIUM [Concomitant]
     Dosage: 40 MG, 1X/DAY
  10. LASIX [Concomitant]
     Dosage: 40 MG, 1X/DAY
  11. POTASSIUM [Concomitant]
     Dosage: 20 MG, 1X/DAY
  12. WARFARIN [Concomitant]
     Dosage: 7.5 MG, 1X/DAY
  13. DICLOFENAC SODIUM [Concomitant]
     Dosage: UNK

REACTIONS (3)
  - BURNING SENSATION [None]
  - DRUG INEFFECTIVE [None]
  - NEURALGIA [None]
